FAERS Safety Report 7561088-2 (Version None)
Quarter: 2011Q2

REPORT INFORMATION
  Report Type: 
  Country: None (occurrence: None)
  Receive Date: 20110621
  Receipt Date: 20110620
  Transmission Date: 20111010
  Serious: Yes (Other)
  Sender: FDA-Public Use
  Company Number: US-UCBSA-012825

PATIENT
  Sex: Male
  Weight: 7.84 kg

DRUGS (3)
  1. KEPPRA [Suspect]
     Indication: EPILEPSY
     Route: 064
     Dates: start: 20050101
  2. KEPPRA [Suspect]
     Route: 064
     Dates: end: 20080905
  3. KEPPRA [Suspect]
     Route: 064
     Dates: start: 20080906

REACTIONS (9)
  - FINE MOTOR DELAY [None]
  - STRABISMUS CONGENITAL [None]
  - GROWTH RETARDATION [None]
  - GASTROOESOPHAGEAL REFLUX DISEASE [None]
  - DEVELOPMENTAL DELAY [None]
  - SPEECH DISORDER DEVELOPMENTAL [None]
  - DRUG EXPOSURE DURING PREGNANCY [None]
  - CONJUNCTIVAL CYST [None]
  - AMBLYOPIA [None]
